FAERS Safety Report 19586309 (Version 1)
Quarter: 2021Q3

REPORT INFORMATION
  Report Type: Spontaneous
  Country: FR (occurrence: FR)
  Receive Date: 20210721
  Receipt Date: 20210721
  Transmission Date: 20211014
  Serious: Yes (Death)
  Sender: FDA-Public Use
  Company Number: FR-ROCHE-2872847

PATIENT
  Age: 71 Year
  Sex: Female
  Weight: 54 kg

DRUGS (4)
  1. IVERMECTINE [Suspect]
     Active Substance: IVERMECTIN
     Indication: RENAL TRANSPLANT
     Route: 042
     Dates: start: 20210527
  2. CIMETIDINE [Suspect]
     Active Substance: CIMETIDINE
     Indication: RENAL TRANSPLANT
     Route: 042
     Dates: start: 20210527
  3. SIMULECT [Suspect]
     Active Substance: BASILIXIMAB
     Indication: RENAL TRANSPLANT
     Route: 042
     Dates: start: 20210527
  4. CELLCEPT [Suspect]
     Active Substance: MYCOPHENOLATE MOFETIL\MYCOPHENOLATE MOFETIL HYDROCHLORIDE
     Indication: RENAL TRANSPLANT
     Route: 042
     Dates: start: 20210527

REACTIONS (2)
  - Intestinal ischaemia [Fatal]
  - Hypotension [Fatal]

NARRATIVE: CASE EVENT DATE: 20210528
